FAERS Safety Report 4972893-0 (Version None)
Quarter: 2006Q2

REPORT INFORMATION
  Report Type: 
  Country: None (occurrence: None)
  Receive Date: 20060410
  Receipt Date: 20060321
  Transmission Date: 20061013
  Serious: Yes (Hospitalization, Other)
  Sender: FDA-Public Use
  Company Number: US200603005561

PATIENT
  Age: 72 Year
  Sex: Female

DRUGS (3)
  1. HUMALOG [Suspect]
     Indication: DIABETES MELLITUS
  2. HUMALOG MIX 50/50 [Suspect]
     Indication: DIABETES MELLITUS
     Dosage: SEE IMAGE
  3. HUMALOG MIX 50/50 [Suspect]
     Indication: DIABETES MELLITUS
     Dosage: SEE IMAGE

REACTIONS (13)
  - BLOOD GLUCOSE INCREASED [None]
  - DIFFICULTY IN WALKING [None]
  - DYSSTASIA [None]
  - HIP ARTHROPLASTY [None]
  - HYPOACUSIS [None]
  - MALAISE [None]
  - MEDICAL DEVICE COMPLICATION [None]
  - MOBILITY DECREASED [None]
  - OEDEMA PERIPHERAL [None]
  - PHARMACEUTICAL PRODUCT COMPLAINT [None]
  - TREMOR [None]
  - VISUAL ACUITY REDUCED [None]
  - WRONG TECHNIQUE IN DRUG USAGE PROCESS [None]
